FAERS Safety Report 14339791 (Version 1)
Quarter: 2017Q4

REPORT INFORMATION
  Report Type: Spontaneous
  Country: US (occurrence: US)
  Receive Date: 20171230
  Receipt Date: 20171230
  Transmission Date: 20180321
  Serious: Yes (Other)
  Sender: FDA-Public Use
  Company Number: US-MYLANLABS-2017M1080541

PATIENT
  Age: 62 Year
  Sex: Female

DRUGS (1)
  1. TAMOXIFEN [Suspect]
     Active Substance: TAMOXIFEN
     Indication: PROPHYLAXIS
     Dosage: 20MG DAILY
     Route: 065

REACTIONS (3)
  - Condition aggravated [Unknown]
  - Endometriosis [Unknown]
  - Haematuria [Unknown]
